FAERS Safety Report 14944423 (Version 1)
Quarter: 2018Q2

REPORT INFORMATION
  Report Type: Spontaneous
  Country: FR (occurrence: FR)
  Receive Date: 20180528
  Receipt Date: 20180528
  Transmission Date: 20180711
  Serious: Yes (Hospitalization)
  Sender: FDA-Public Use
  Company Number: FR-TEVA-2018-FR-898774

PATIENT
  Age: 44 Year
  Sex: Female
  Weight: 53.8 kg

DRUGS (2)
  1. IBUPROFEN. [Suspect]
     Active Substance: IBUPROFEN
     Indication: CYSTITIS
     Dosage: UNKNOWN
     Route: 048
     Dates: start: 20171004, end: 20171006
  2. CIPROFLOXACINE [Suspect]
     Active Substance: CIPROFLOXACIN
     Indication: CYSTITIS
     Dosage: UNKNOWN
     Route: 048
     Dates: start: 20171004, end: 20171006

REACTIONS (2)
  - Transaminases increased [Recovering/Resolving]
  - Acute kidney injury [Recovered/Resolved]

NARRATIVE: CASE EVENT DATE: 20171016
